FAERS Safety Report 9471417 (Version 1)
Quarter: 2013Q3

REPORT INFORMATION
  Report Type: Spontaneous
  Country: US (occurrence: US)
  Receive Date: 20130822
  Receipt Date: 20130822
  Transmission Date: 20140515
  Serious: Yes (Other)
  Sender: FDA-Public Use
  Company Number: CHPA2013US013103

PATIENT
  Age: 75 Year
  Sex: Male

DRUGS (4)
  1. MAALOX ANTACID/ANTIGAS MAX QDTABS ASST [Suspect]
     Indication: GASTROOESOPHAGEAL REFLUX DISEASE
     Dosage: 2 DF, AFTER MEALS
     Route: 048
     Dates: start: 2013, end: 2013
  2. MAALOX ANTACID/ANTIGAS MAX QDTABS ASST [Suspect]
     Dosage: 2 DF, QD
     Route: 048
     Dates: start: 20130817, end: 20130818
  3. HUMALOG [Concomitant]
     Indication: DIABETES MELLITUS
     Dosage: UNK, UNK
  4. LEVEMIR [Concomitant]
     Indication: DIABETES MELLITUS
     Dosage: UNK, UNK

REACTIONS (2)
  - Blood glucose increased [Recovered/Resolved]
  - Off label use [Unknown]
